FAERS Safety Report 5059727-3 (Version None)
Quarter: 2006Q3

REPORT INFORMATION
  Report Type: 
  Country: None (occurrence: None)
  Receive Date: 20060724
  Receipt Date: 20060713
  Transmission Date: 20061208
  Serious: Yes (Other)
  Sender: FDA-Public Use
  Company Number: US-JNJFOC-20060307151

PATIENT
  Sex: Female
  Weight: 126.55 kg

DRUGS (33)
  1. REMICADE [Suspect]
     Dosage: 600 MG DOSE
     Route: 042
  2. REMICADE [Suspect]
     Dosage: 600 MG DOSE
     Route: 042
  3. REMICADE [Suspect]
     Indication: COLITIS ULCERATIVE
     Dosage: 600 MG DOSE
     Route: 042
  4. PLAQUENIL [Concomitant]
  5. FLEXERIL [Concomitant]
  6. PREVACID [Concomitant]
  7. COLAZAL [Concomitant]
  8. IMURAN [Concomitant]
  9. HYDROCODONE [Concomitant]
     Dosage: DOSE 7.5/500
  10. ATENOLOL [Concomitant]
  11. XANAX [Concomitant]
  12. SYNTHROID [Concomitant]
  13. ALBUTEROL [Concomitant]
  14. TOPICORT [Concomitant]
  15. SINGULAIR [Concomitant]
  16. ZYRTEC [Concomitant]
  17. FLONASE [Concomitant]
  18. NEURONTIN [Concomitant]
  19. PROCTOCORT [Concomitant]
  20. ZETIA [Concomitant]
  21. NASONEX [Concomitant]
  22. LEXAPRO [Concomitant]
  23. RESTASIS [Concomitant]
  24. VITAMINS [Concomitant]
  25. FISH OIL [Concomitant]
  26. CALCIUM GLUCONATE [Concomitant]
  27. BENADRYL [Concomitant]
  28. NEOSYNEPHRINE [Concomitant]
  29. ZINC [Concomitant]
  30. PAPAYA [Concomitant]
  31. LUTEIN [Concomitant]
  32. BILBERRY [Concomitant]
  33. ALBUTEROL SPIROS [Concomitant]

REACTIONS (5)
  - ARTHRITIS [None]
  - PLANTAR FASCIITIS [None]
  - RESPIRATORY TRACT INFECTION [None]
  - SYSTEMIC LUPUS ERYTHEMATOSUS [None]
  - TENDONITIS [None]
